FAERS Safety Report 25412972 (Version 1)
Quarter: 2025Q2

REPORT INFORMATION
  Report Type: Spontaneous
  Country: US (occurrence: None)
  Receive Date: 20250606
  Receipt Date: 20250606
  Transmission Date: 20250716
  Serious: Yes (unspecified)
  Sender: FDA-CTU
  Company Number: None

PATIENT
  Age: 66 Year
  Sex: Male

DRUGS (7)
  1. PENICILLIN G POTASSIUM [Suspect]
     Active Substance: PENICILLIN G POTASSIUM
     Indication: Streptococcal bacteraemia
     Dosage: FREQUENCY : DAILY;?
     Route: 042
     Dates: start: 20250408, end: 20250428
  2. PENICILLIN G POTASSIUM [Suspect]
     Active Substance: PENICILLIN G POTASSIUM
     Indication: Cellulitis
  3. BUMETANIDE [Suspect]
     Active Substance: BUMETANIDE
  4. INSULIN NOS [Concomitant]
     Active Substance: INSULIN NOS
  5. METOLAZONE [Suspect]
     Active Substance: METOLAZONE
  6. MEROPENEM [Suspect]
     Active Substance: MEROPENEM
  7. AMIODARONE [Suspect]
     Active Substance: AMIODARONE

REACTIONS (10)
  - Rash maculo-papular [None]
  - Pyrexia [None]
  - Asthenia [None]
  - Myalgia [None]
  - Hypoxia [None]
  - Blood potassium increased [None]
  - Paradoxical drug reaction [None]
  - False positive investigation result [None]
  - Drug monitoring procedure not performed [None]
  - Adverse drug reaction [None]

NARRATIVE: CASE EVENT DATE: 20250428
